FAERS Safety Report 11039962 (Version 2)
Quarter: 2015Q2

REPORT INFORMATION
  Report Type: Spontaneous
  Country: US (occurrence: US)
  Receive Date: 20150416
  Receipt Date: 20150611
  Transmission Date: 20150821
  Serious: Yes (Hospitalization, Other)
  Sender: FDA-Public Use
  Company Number: US-009507513-1112USA02103

PATIENT
  Sex: Female

DRUGS (4)
  1. ALENDRONATE SODIUM. [Suspect]
     Active Substance: ALENDRONATE SODIUM
     Indication: BONE DENSITY DECREASED
     Dosage: 35 MG, UNK
     Route: 048
     Dates: start: 2005, end: 20091201
  2. FOSAMAX PLUS D [Suspect]
     Active Substance: ALENDRONATE SODIUM\CHOLECALCIFEROL
     Indication: BONE DENSITY DECREASED
     Dosage: 70MG / 2800IU
     Route: 048
     Dates: start: 20070818, end: 20080616
  3. FOSAMAX PLUS D [Suspect]
     Active Substance: ALENDRONATE SODIUM\CHOLECALCIFEROL
     Dosage: 70MG / 5600IU
     Route: 048
     Dates: start: 20080809, end: 20090315
  4. FOSAMAX [Suspect]
     Active Substance: ALENDRONATE SODIUM
     Indication: BONE DENSITY DECREASED
     Dosage: 35 MG, UNK
     Route: 048
     Dates: start: 2009

REACTIONS (27)
  - Open reduction of fracture [Unknown]
  - Asthma [Unknown]
  - Hypokalaemia [Unknown]
  - Gout [Unknown]
  - Fracture nonunion [Unknown]
  - Sarcoidosis [Unknown]
  - Hyperparathyroidism [Unknown]
  - Implant site pain [Unknown]
  - C-reactive protein increased [Unknown]
  - Hypertriglyceridaemia [Unknown]
  - Pyrexia [Unknown]
  - Osteoporosis [Unknown]
  - Hypotension [Unknown]
  - Dyspnoea [Unknown]
  - Vitamin D decreased [Unknown]
  - Hypertension [Unknown]
  - Sleep apnoea syndrome [Unknown]
  - Femur fracture [Unknown]
  - Anaemia [Unknown]
  - Bone graft [Unknown]
  - Fungal infection [Unknown]
  - Haemorrhagic anaemia [Unknown]
  - Intramedullary rod insertion [Unknown]
  - Removal of internal fixation [Unknown]
  - Uterine disorder [Unknown]
  - Tachycardia [Unknown]
  - Red blood cell sedimentation rate increased [Unknown]

NARRATIVE: CASE EVENT DATE: 20050125
